FAERS Safety Report 4321055-9 (Version None)
Quarter: 2004Q1

REPORT INFORMATION
  Report Type: 
  Country: None (occurrence: None)
  Receive Date: 20040318
  Receipt Date: 20040311
  Transmission Date: 20041129
  Serious: Yes (Other)
  Sender: FDA-Public Use
  Company Number: DEU-2004-0000771

PATIENT
  Age: 59 Year
  Sex: Female
  Weight: 70 kg

DRUGS (4)
  1. OXYGESIC 10MG(OXY CR TAB 10MG)CR TABLET [Suspect]
     Indication: BACK PAIN
     Dosage: 10 MG, TID, ORAL
     Route: 048
     Dates: start: 20030603, end: 20030613
  2. PHYSIOTENS ^SOLVAY^ (MOXONIDINE) [Concomitant]
  3. SCANDICAN ^ASTRA^ (MEPIVACAINE HYDROCHLORIDE) [Concomitant]
  4. PREDNISOLONE [Concomitant]

REACTIONS (1)
  - BLOOD PRESSURE INCREASED [None]
